FAERS Safety Report 7817927-0 (Version None)
Quarter: 2011Q4

REPORT INFORMATION
  Report Type: 
  Country: None (occurrence: None)
  Receive Date: 20111017
  Receipt Date: 20111011
  Transmission Date: 20120403
  Serious: Yes (Hospitalization)
  Sender: FDA-Public Use
  Company Number: US-GLAXOSMITHKLINE-A0911675A

PATIENT
  Age: 71 Year
  Sex: Male
  Weight: 113.6 kg

DRUGS (11)
  1. GLUCOPHAGE [Concomitant]
  2. TOPROL-XL [Concomitant]
  3. AMARYL [Concomitant]
  4. ZOCOR [Concomitant]
  5. AVANDAMET [Suspect]
     Indication: DIABETES MELLITUS
     Dosage: 1TAB PER DAY
     Route: 048
     Dates: start: 20030801, end: 20050101
  6. LISINOPRIL [Concomitant]
  7. AVANDIA [Suspect]
     Indication: DIABETES MELLITUS
     Dosage: 8MG PER DAY
     Route: 048
     Dates: start: 20050101, end: 20071025
  8. PROTONIX [Concomitant]
  9. GLUCOTROL [Concomitant]
  10. VYTORIN [Concomitant]
  11. VIOXX [Concomitant]

REACTIONS (5)
  - CORONARY ARTERY DISEASE [None]
  - SINUS BRADYCARDIA [None]
  - ACUTE MYOCARDIAL INFARCTION [None]
  - BUNDLE BRANCH BLOCK RIGHT [None]
  - MYOCARDIAL ISCHAEMIA [None]
